FAERS Safety Report 7635869-0 (Version None)
Quarter: 2011Q3

REPORT INFORMATION
  Report Type: 
  Country: None (occurrence: None)
  Receive Date: 20110726
  Receipt Date: 20110713
  Transmission Date: 20111222
  Serious: Yes (Hospitalization)
  Sender: FDA-Public Use
  Company Number: DE-B.I. PHARMACEUTICALS,INC./RIDGEFIELD-2011-DE-03087DE

PATIENT
  Sex: Male

DRUGS (48)
  1. KETANEST S [Suspect]
     Dosage: 50 MG
     Route: 042
     Dates: start: 20050702, end: 20050702
  2. KETANEST S [Suspect]
     Dosage: 200 MG
     Route: 042
     Dates: start: 20050705, end: 20050705
  3. TORSEMIDE [Suspect]
     Dosage: 20 MG
     Route: 042
     Dates: start: 20050622
  4. TORSEMIDE [Suspect]
     Dosage: 10 MG
     Route: 042
     Dates: start: 20050704, end: 20050711
  5. ACETAMINOPHEN [Suspect]
     Dosage: 1000 MG
     Route: 042
     Dates: start: 20050709, end: 20050709
  6. LORAZEPAM [Suspect]
     Dosage: 2 MG
     Route: 042
     Dates: start: 20050630, end: 20050701
  7. HALDOL [Suspect]
     Dosage: 5 MG
     Route: 042
     Dates: start: 20050625, end: 20050625
  8. LUDIOMIL [Suspect]
     Dates: start: 20050701, end: 20050704
  9. LUDIOMIL [Suspect]
     Dosage: 75 MG
     Route: 048
     Dates: start: 20050705, end: 20050710
  10. PROMETHAZINE HCL [Suspect]
     Dosage: 50 MG
     Route: 048
     Dates: start: 20050710, end: 20050710
  11. NEXIUM [Suspect]
     Dosage: 40 MG
     Route: 042
     Dates: start: 20050622, end: 20050703
  12. MORPHINE [Suspect]
     Indication: RESTLESS LEGS SYNDROME
     Dosage: 190 MG
  13. CLONIDINE HCL [Suspect]
     Route: 042
     Dates: start: 20050624, end: 20050709
  14. PROPOFOL [Suspect]
     Dosage: 250 MG
     Route: 042
     Dates: start: 20050623, end: 20050623
  15. MIDAZOLAM HCL [Suspect]
     Route: 042
     Dates: start: 20050623, end: 20050624
  16. CLORAZEPATE DIPOTASSIUM [Suspect]
     Dosage: 150 MG
     Route: 042
     Dates: start: 20050624, end: 20050624
  17. LUDIOMIL [Suspect]
     Dosage: 75 MG
     Dates: start: 20050630, end: 20050630
  18. MADOPAR [Suspect]
     Indication: RESTLESS LEGS SYNDROME
     Dosage: 125 MG
     Route: 048
     Dates: start: 20050707, end: 20050710
  19. ASPIRIN [Suspect]
     Dosage: 100 MG
     Route: 048
     Dates: start: 20050706, end: 20050706
  20. METOCLOPRAMIDE [Suspect]
     Dosage: 16.9 MG
     Route: 042
     Dates: start: 20050709, end: 20050709
  21. SCOPOLAMINE [Suspect]
     Dosage: 20 MG
     Route: 042
     Dates: start: 20050709, end: 20050709
  22. KETANEST S [Suspect]
     Dosage: 100 MG
     Route: 042
     Dates: start: 20050708, end: 20050708
  23. LORAZEPAM [Suspect]
     Dosage: 1 MG
     Route: 042
     Dates: start: 20050709, end: 20050709
  24. PROPOFOL [Suspect]
     Route: 042
     Dates: start: 20050624, end: 20050624
  25. CLORAZEPATE DIPOTASSIUM [Suspect]
     Dosage: 50 MG
     Route: 042
     Dates: start: 20050627, end: 20050627
  26. HALDOL [Suspect]
     Dosage: 7.5 MG
     Route: 042
     Dates: start: 20050627, end: 20050630
  27. LUDIOMIL [Suspect]
     Dosage: 25 MG
     Route: 048
     Dates: start: 20050711, end: 20050711
  28. PROMETHAZINE HCL [Suspect]
     Dosage: 50 MG
     Route: 048
     Dates: start: 20050708, end: 20050708
  29. PROMETHAZINE HCL [Suspect]
     Dosage: 50 MG
     Route: 042
     Dates: start: 20050709, end: 20050709
  30. TORSEMIDE [Suspect]
     Dosage: 70 MG
     Route: 042
     Dates: start: 20050623, end: 20050623
  31. NOVALGIN [Suspect]
     Dosage: 1000 MG
     Route: 042
     Dates: start: 20050709, end: 20050709
  32. HALDOL [Suspect]
     Dosage: 7.5 MG
     Route: 042
     Dates: start: 20050703, end: 20050704
  33. PROPOFOL [Suspect]
     Indication: ANAESTHESIA
     Dosage: 320 MG
     Route: 042
     Dates: start: 20050622, end: 20050622
  34. MIDAZOLAM HCL [Suspect]
     Dosage: 2 MG
     Route: 042
     Dates: start: 20050702, end: 20050702
  35. CLORAZEPATE DIPOTASSIUM [Suspect]
     Dosage: 50 MG
     Route: 042
     Dates: start: 20050708, end: 20050708
  36. METHYLPREDNISOLONE [Suspect]
     Dosage: 16 MG
     Route: 042
     Dates: start: 20050624, end: 20050624
  37. NEXIUM [Suspect]
     Dosage: 40 MG
     Route: 048
     Dates: start: 20050704, end: 20050711
  38. PROPOFOL [Suspect]
     Dosage: 20 MG
     Route: 042
     Dates: start: 20050625, end: 20050625
  39. CLORAZEPATE DIPOTASSIUM [Suspect]
     Dosage: 50 MG
     Route: 042
     Dates: start: 20050629, end: 20050701
  40. CLORAZEPATE DIPOTASSIUM [Suspect]
     Dosage: 200 MG
     Route: 042
     Dates: start: 20050705, end: 20050705
  41. HALDOL [Suspect]
     Dosage: 17.5 MG
     Route: 042
     Dates: start: 20050626, end: 20050626
  42. CIPRO [Suspect]
     Dosage: 400 MG
     Route: 042
     Dates: start: 20050709, end: 20050711
  43. LORAZEPAM [Suspect]
     Dosage: 2.5 MG
     Route: 042
     Dates: start: 20050705, end: 20050705
  44. CLORAZEPATE DIPOTASSIUM [Suspect]
     Dosage: 425 MG
     Route: 042
     Dates: start: 20050625, end: 20050625
  45. HALDOL [Suspect]
     Dosage: 12.5 MG
     Route: 042
     Dates: start: 20050701, end: 20050701
  46. HALDOL [Suspect]
     Dosage: 17.5 MG
     Route: 042
     Dates: start: 20050702, end: 20050702
  47. LUDIOMIL [Suspect]
     Dates: start: 20050628, end: 20050629
  48. TORSEMIDE [Suspect]
     Dosage: 30 MG
     Route: 042
     Dates: start: 20050624, end: 20050703

REACTIONS (10)
  - TRACHEOBRONCHITIS [None]
  - OVERDOSE [None]
  - SCREAMING [None]
  - FALL [None]
  - ACUTE ABDOMEN [None]
  - LOSS OF CONSCIOUSNESS [None]
  - DRUG INTERACTION [None]
  - RESTLESSNESS [None]
  - DISORIENTATION [None]
  - SUICIDE ATTEMPT [None]
